FAERS Safety Report 15022627 (Version 1)
Quarter: 2018Q2

REPORT INFORMATION
  Report Type: Spontaneous
  Country: US (occurrence: US)
  Receive Date: 20180618
  Receipt Date: 20180618
  Transmission Date: 20180711
  Serious: Yes (Hospitalization, Other)
  Sender: FDA-Public Use
  Company Number: US-SAOL THERAPEUTICS-2018SAO00854

PATIENT
  Age: 11 Year
  Sex: Male

DRUGS (2)
  1. LIORESAL [Suspect]
     Active Substance: BACLOFEN
     Dosage: 150 ?G, \DAY INCREASED BY 150 ?G/DAY
     Route: 037
     Dates: start: 20180607
  2. LIORESAL [Suspect]
     Active Substance: BACLOFEN
     Dosage: 1698.2 ?G, \DAY
     Route: 037

REACTIONS (7)
  - Somnolence [Recovering/Resolving]
  - Dehydration [Recovering/Resolving]
  - Excessive granulation tissue [Recovered/Resolved]
  - Hypertonia [Unknown]
  - Vomiting [Recovering/Resolving]
  - Blood electrolytes abnormal [Recovering/Resolving]
  - Urine output decreased [Recovering/Resolving]

NARRATIVE: CASE EVENT DATE: 20180604
